FAERS Safety Report 12685266 (Version 1)
Quarter: 2016Q3

REPORT INFORMATION
  Report Type: Spontaneous
  Country: FR (occurrence: FR)
  Receive Date: 20160825
  Receipt Date: 20160825
  Transmission Date: 20161109
  Serious: Yes (Other)
  Sender: FDA-Public Use
  Company Number: PHHY2016FR115287

PATIENT
  Age: 82 Year
  Sex: Female

DRUGS (7)
  1. CARBOPLATIN. [Suspect]
     Active Substance: CARBOPLATIN
     Indication: DISEASE PROGRESSION
     Dosage: 348 MG, UNK
     Route: 065
     Dates: start: 20141209
  2. CARBOPLATIN. [Interacting]
     Active Substance: CARBOPLATIN
     Indication: NON-SMALL CELL LUNG CANCER
  3. ERLOTINIB [Interacting]
     Active Substance: ERLOTINIB
     Indication: NON-SMALL CELL LUNG CANCER
     Dosage: 150 MG, QD
     Route: 065
     Dates: start: 201402
  4. PEMETREXED [Interacting]
     Active Substance: PEMETREXED
     Indication: DISEASE PROGRESSION
     Dosage: 825 MG, UNK
     Route: 065
     Dates: start: 20141209
  5. ERLOTINIB [Interacting]
     Active Substance: ERLOTINIB
     Dosage: 100 MG, UNK
     Route: 065
     Dates: start: 20141221, end: 20141226
  6. PEMETREXED [Interacting]
     Active Substance: PEMETREXED
     Indication: NON-SMALL CELL LUNG CANCER
  7. ERLOTINIB [Interacting]
     Active Substance: ERLOTINIB
     Dosage: 100 MG, UNK
     Route: 065
     Dates: start: 20150104

REACTIONS (3)
  - Asthenia [Unknown]
  - Drug interaction [Unknown]
  - Diarrhoea [Recovered/Resolved]
